APPROVED DRUG PRODUCT: GENTAFAIR
Active Ingredient: GENTAMICIN SULFATE
Strength: EQ 40MG BASE/ML
Dosage Form/Route: INJECTABLE;INJECTION
Application: A062493 | Product #001
Applicant: PHARMAFAIR INC
Approved: Aug 28, 1985 | RLD: No | RS: No | Type: DISCN